FAERS Safety Report 22398190 (Version 1)
Quarter: 2023Q2

REPORT INFORMATION
  Report Type: Spontaneous
  Country: US (occurrence: US)
  Receive Date: 20230602
  Receipt Date: 20230602
  Transmission Date: 20230721
  Serious: No
  Sender: FDA-Public Use
  Company Number: US-BAXTER-2023BAX022881

PATIENT

DRUGS (2)
  1. CYCLOPHOSPHAMIDE [Interacting]
     Active Substance: CYCLOPHOSPHAMIDE
     Route: 065
  2. XELJANZ XR [Interacting]
     Active Substance: TOFACITINIB CITRATE
     Route: 065

REACTIONS (1)
  - Drug interaction [Unknown]
